FAERS Safety Report 5418258-9 (Version None)
Quarter: 2007Q3

REPORT INFORMATION
  Report Type: 
  Country: None (occurrence: None)
  Receive Date: 20070817
  Receipt Date: 20070810
  Transmission Date: 20080115
  Serious: Yes (Death)
  Sender: FDA-Public Use
  Company Number: B0473098B

PATIENT
  Age: 8 Year
  Sex: Male

DRUGS (4)
  1. ABACAVIR [Suspect]
     Indication: HIV INFECTION
     Dates: start: 20070504, end: 20070717
  2. NEVIRAPINE [Suspect]
     Indication: HIV INFECTION
     Dates: start: 20070504, end: 20070717
  3. 3TC [Suspect]
     Indication: HIV INFECTION
     Dates: start: 20070504, end: 20070717
  4. MULTI-VITAMIN [Concomitant]

REACTIONS (15)
  - ASTHENIA [None]
  - BLOOD AMYLASE DECREASED [None]
  - BLOOD BICARBONATE DECREASED [None]
  - BLOOD CHLORIDE INCREASED [None]
  - BLOOD UREA INCREASED [None]
  - DIARRHOEA [None]
  - DRUG TOXICITY [None]
  - HEPATIC FAILURE [None]
  - MYALGIA [None]
  - PRURITUS [None]
  - PYREXIA [None]
  - SEPSIS [None]
  - SOMNOLENCE [None]
  - VOMITING [None]
  - WEIGHT DECREASED [None]
